FAERS Safety Report 16586227 (Version 1)
Quarter: 2019Q3

REPORT INFORMATION
  Report Type: Spontaneous
  Country: DE (occurrence: DE)
  Receive Date: 20190717
  Receipt Date: 20190717
  Transmission Date: 20191004
  Serious: Yes (Hospitalization)
  Sender: FDA-Public Use
  Company Number: DE-TEVA-2019-DE-1077467

PATIENT
  Age: 43 Year
  Sex: Male

DRUGS (11)
  1. PREDNISOLONE. [Suspect]
     Active Substance: PREDNISOLONE
     Dosage: 30 MG, 1-0-0-0, TABLETS
     Route: 048
  2. DARATUMUMAB [Suspect]
     Active Substance: DARATUMUMAB
     Dosage: 20 MG / KG BODY WEIGHT, ACCORDING TO THE SCHEME, SOLUTION FOR INJECTION / INFUSION
     Route: 042
  3. ACICLOVIR [Concomitant]
     Active Substance: ACYCLOVIR
     Dosage: 400 MG, 1-0-1-0, TABLETS
     Route: 048
  4. TACROLIMUS. [Suspect]
     Active Substance: TACROLIMUS
     Dosage: 3 MG, 1-0-0-0, TABLETS
     Route: 048
  5. INSULIN HUMAN [Concomitant]
     Active Substance: INSULIN HUMAN
     Dosage: ACCORDING TO PLAN, SOLUTION FOR INJECTION / INFUSION
     Route: 058
  6. JARDIANCE [Concomitant]
     Active Substance: EMPAGLIFLOZIN
     Dosage: 10 MG, 1-0-0-0, TABLETS
     Route: 048
  7. ENTOCORT [Concomitant]
     Active Substance: BUDESONIDE
     Dosage: 3 MG, 1-1-1-0, TABLETS
     Route: 048
  8. POSACONAZOL [Concomitant]
     Active Substance: POSACONAZOLE
     Dosage: 300 MG, 1-0-0-0, TABLETS
     Route: 048
  9. COTRIM FORTE 800MG/160MG [Concomitant]
     Dosage: 960 MG, 1-0-0-0, TABLETS
     Route: 048
  10. ETANERCEPT [Suspect]
     Active Substance: ETANERCEPT
     Dosage: 25 MG, 1-0-0-0, TABLETS
     Route: 048
  11. AMLODIPIN [Concomitant]
     Active Substance: AMLODIPINE BESYLATE
     Dosage: 5 MG, 0-0-1-0, TABLETS
     Route: 048

REACTIONS (4)
  - Dyspnoea [Unknown]
  - Sepsis [Unknown]
  - Acute respiratory failure [Unknown]
  - Off label use [Unknown]
